FAERS Safety Report 17111759 (Version 2)
Quarter: 2019Q4

REPORT INFORMATION
  Report Type: Report from Study
  Country: NL (occurrence: NL)
  Receive Date: 20191204
  Receipt Date: 20191214
  Transmission Date: 20200122
  Serious: Yes (Other)
  Sender: FDA-Public Use
  Company Number: NL-VISTAPHARM, INC.-VER201911-001365

PATIENT

DRUGS (1)
  1. PREDNISOLONE. [Suspect]
     Active Substance: PREDNISOLONE
     Indication: OSTEOARTHRITIS
     Dosage: UNKNOWN

REACTIONS (1)
  - Myocardial infarction [Unknown]
